FAERS Safety Report 6653404-0 (Version None)
Quarter: 2010Q1

REPORT INFORMATION
  Report Type: 
  Country: None (occurrence: None)
  Receive Date: 20100326
  Receipt Date: 20100317
  Transmission Date: 20100710
  Serious: Yes (Other)
  Sender: FDA-Public Use
  Company Number: PHHY2010GB04508

PATIENT
  Sex: Male
  Weight: 105 kg

DRUGS (7)
  1. TEGRETOL [Suspect]
     Dosage: UNK
     Route: 048
  2. TEGRETOL [Suspect]
     Dosage: 400 MG TWICE/DAY
     Route: 048
     Dates: start: 20000101
  3. ALLOPURINOL [Concomitant]
     Indication: GOUT
     Dosage: UNK
     Route: 048
     Dates: start: 20000101
  4. LAMOTRIGINE [Concomitant]
     Indication: EPILEPSY
     Dosage: UNK
     Route: 048
     Dates: start: 20000101
  5. LOSARTAN POTASSIUM [Concomitant]
     Indication: HYPERTENSION
     Dosage: UNK
     Route: 048
     Dates: start: 20000101
  6. ATORVASTATIN CALCIUM [Concomitant]
     Indication: HYPERTENSION
     Dosage: UNK
     Route: 048
     Dates: start: 20000101
  7. METFORMIN HYDROCHLORIDE [Concomitant]
     Indication: TYPE 2 DIABETES MELLITUS
     Dosage: 1000
     Route: 048
     Dates: start: 20090603

REACTIONS (4)
  - AGITATION [None]
  - CONVULSION [None]
  - DEPRESSION [None]
  - GRAND MAL CONVULSION [None]
